FAERS Safety Report 19201842 (Version 1)
Quarter: 2021Q2

REPORT INFORMATION
  Report Type: Report from Study
  Country: US (occurrence: US)
  Receive Date: 20210430
  Receipt Date: 20210430
  Transmission Date: 20210717
  Serious: Yes (Hospitalization)
  Sender: FDA-Public Use
  Company Number: US-GILEAD-2021-0526612

PATIENT
  Age: 8 Year
  Sex: Female

DRUGS (9)
  1. CREON [Concomitant]
     Active Substance: PANCRELIPASE AMYLASE\PANCRELIPASE LIPASE\PANCRELIPASE PROTEASE
  2. MOTRIN [Concomitant]
     Active Substance: IBUPROFEN
  3. PEPCID [Concomitant]
     Active Substance: FAMOTIDINE
  4. VITAMIN D [VITAMIN D NOS] [Concomitant]
     Active Substance: VITAMIN D NOS
  5. AZTREONAM LYSINE [Suspect]
     Active Substance: AZTREONAM LYSINE
     Indication: CYSTIC FIBROSIS
     Dosage: 75 MG, TID
     Route: 065
     Dates: start: 20190703
  6. XOPENEX HFA [Concomitant]
     Active Substance: LEVALBUTEROL TARTRATE
  7. PULMOZYME [Concomitant]
     Active Substance: DORNASE ALFA
  8. TYLENOL [Concomitant]
     Active Substance: ACETAMINOPHEN
  9. MCT OIL [COCOS NUCIFERA OIL] [Concomitant]

REACTIONS (1)
  - Infection [Unknown]
